FAERS Safety Report 4668370-7 (Version None)
Quarter: 2005Q2

REPORT INFORMATION
  Report Type: 
  Country: None (occurrence: None)
  Receive Date: 20050523
  Receipt Date: 20050511
  Transmission Date: 20051028
  Serious: Yes (Hospitalization)
  Sender: FDA-Public Use
  Company Number: CA-JNJFOC-20050401237

PATIENT
  Sex: Female
  Weight: 85.28 kg

DRUGS (5)
  1. REMICADE [Suspect]
     Indication: CROHN'S DISEASE
     Route: 042
  2. PREDNISONE [Concomitant]
  3. IMURAN [Concomitant]
  4. CORTEF [Concomitant]
  5. GLUCOPHAGE [Concomitant]

REACTIONS (1)
  - ERYTHEMA MULTIFORME [None]
